FAERS Safety Report 9100701 (Version 1)
Quarter: 2013Q1

REPORT INFORMATION
  Report Type: Spontaneous
  Country: US (occurrence: US)
  Receive Date: 20130215
  Receipt Date: 20130215
  Transmission Date: 20140127
  Serious: Yes (Other)
  Sender: FDA-Public Use
  Company Number: US-SANOFI-AVENTIS-2013SA004755

PATIENT
  Age: 59 Year
  Sex: Male
  Weight: 90.9 kg

DRUGS (5)
  1. AUBAGIO [Suspect]
     Indication: MULTIPLE SCLEROSIS
     Route: 048
     Dates: start: 20130101, end: 20130122
  2. WARFARIN [Concomitant]
     Indication: HEART VALVE REPLACEMENT
     Dates: start: 19980825
  3. VALSARTAN [Concomitant]
     Indication: HEART VALVE REPLACEMENT
     Dates: start: 19980825
  4. SIMVASTATIN [Concomitant]
     Indication: HEART VALVE REPLACEMENT
     Dates: start: 19980825
  5. HYDROCHLOROTHIAZIDE [Concomitant]
     Indication: HEART VALVE REPLACEMENT
     Dates: start: 19980825

REACTIONS (6)
  - Atrial fibrillation [Not Recovered/Not Resolved]
  - Diarrhoea [Not Recovered/Not Resolved]
  - Eructation [Not Recovered/Not Resolved]
  - Abdominal discomfort [Not Recovered/Not Resolved]
  - Exfoliative rash [Not Recovered/Not Resolved]
  - Weight decreased [Not Recovered/Not Resolved]
